FAERS Safety Report 6135432-7 (Version None)
Quarter: 2009Q1

REPORT INFORMATION
  Report Type: 
  Country: None (occurrence: None)
  Receive Date: 20090327
  Receipt Date: 20090317
  Transmission Date: 20090719
  Serious: Yes (Hospitalization, Other)
  Sender: FDA-Public Use
  Company Number: IT-ELI_LILLY_AND_COMPANY-IT200903003806

PATIENT
  Age: 58 Year
  Sex: Male

DRUGS (1)
  1. BYETTA [Suspect]
     Indication: DIABETES MELLITUS
     Dosage: UNK, UNKNOWN
     Route: 065
     Dates: start: 20080601, end: 20080601

REACTIONS (9)
  - ABDOMINAL PAIN [None]
  - ASTHENIA [None]
  - HYPERCALCAEMIA [None]
  - MALAISE [None]
  - NAUSEA [None]
  - PANCREATITIS [None]
  - PARATHYROID DISORDER [None]
  - SOMNOLENCE [None]
  - WEIGHT DECREASED [None]
